FAERS Safety Report 5747400-5 (Version None)
Quarter: 2008Q2

REPORT INFORMATION
  Report Type: 
  Country: None (occurrence: None)
  Receive Date: 20080523
  Receipt Date: 20080521
  Transmission Date: 20081010
  Serious: Yes (Hospitalization)
  Sender: FDA-Public Use
  Company Number: US-BRISTOL-MYERS SQUIBB COMPANY-12230561

PATIENT
  Age: 55 Year
  Sex: Female

DRUGS (3)
  1. GLUCOPHAGE [Suspect]
     Indication: DIABETES MELLITUS
     Dosage: UNKNOWN TILL 04MAR2003 850MG BID; 04-MAR2003 ONGOING 1000MG TID
     Route: 048
     Dates: end: 20030304
  2. HYDROCORTISONE [Suspect]
     Indication: HYPOTHALAMO-PITUITARY DISORDER
     Dosage: DURATION OF THERAPY:  ^MANY YEARS^. 40MG UNK-01MAR2003, INCREASED TO120MG 01MAR2003 ONGOING.
     Route: 048
  3. VANCOMYCIN [Concomitant]
     Route: 048
     Dates: start: 20030304

REACTIONS (2)
  - ERYSIPELAS [None]
  - RHABDOMYOLYSIS [None]
